FAERS Safety Report 8912526 (Version 4)
Quarter: 2016Q2

REPORT INFORMATION
  Report Type: Report from Study
  Country: US (occurrence: US)
  Receive Date: 20121116
  Receipt Date: 20160408
  Transmission Date: 20160815
  Serious: Yes (Other)
  Sender: FDA-Public Use
  Company Number: US-AMGEN-USASP2012072728

PATIENT
  Age: 51 Year
  Sex: Female

DRUGS (1)
  1. ENBREL [Suspect]
     Active Substance: ETANERCEPT
     Indication: RHEUMATOID ARTHRITIS
     Dosage: 25 MG, 2 TIMES/WK
     Route: 065
     Dates: start: 200210, end: 2016

REACTIONS (14)
  - Optic neuritis [Unknown]
  - Disability [Unknown]
  - Arthralgia [Not Recovered/Not Resolved]
  - Pain in extremity [Not Recovered/Not Resolved]
  - Mobility decreased [Unknown]
  - Fall [Not Recovered/Not Resolved]
  - Wrist fracture [Not Recovered/Not Resolved]
  - Multiple sclerosis [Unknown]
  - Injection site pain [Recovered/Resolved]
  - Musculoskeletal disorder [Unknown]
  - Nodule [Not Recovered/Not Resolved]
  - Arthropathy [Unknown]
  - Hand fracture [Not Recovered/Not Resolved]
  - Corrective lens user [Unknown]

NARRATIVE: CASE EVENT DATE: 2011
